FAERS Safety Report 7489466-0 (Version None)
Quarter: 2011Q2

REPORT INFORMATION
  Report Type: 
  Country: None (occurrence: None)
  Receive Date: 20110518
  Receipt Date: 20110512
  Transmission Date: 20111010
  Serious: Yes (Death)
  Sender: FDA-Public Use
  Company Number: US-RB-025022-11

PATIENT
  Sex: Male

DRUGS (10)
  1. SUBOXONE [Suspect]
     Indication: DRUG DEPENDENCE
     Dosage: DOSE WAS 2/5 OF AN 8 MG FILM
     Route: 065
     Dates: start: 20110215
  2. ACETAMINOPHEN AND HYDROCODONE BITARTRATE [Suspect]
     Indication: PRODUCT USED FOR UNKNOWN INDICATION
     Dosage: DOSE  STRENGTH 7.5/500
     Route: 065
     Dates: start: 20110301
  3. CLONAZEPAM [Concomitant]
     Indication: SLEEP DISORDER
  4. HYDROCODONE [Concomitant]
     Indication: PAIN
     Dosage: DOSING INFORMATION UNKNOWN
  5. SUBOXONE [Suspect]
     Dosage: DOSE RANGE FROM 8-16 MG DAILY
     Route: 065
     Dates: start: 20100910
  6. CLONAZEPAM [Suspect]
     Indication: PRODUCT USED FOR UNKNOWN INDICATION
     Dosage: ORDERED 2 MG #60 ON 14-MAR-2011
     Route: 065
     Dates: start: 20110101
  7. FENTANYL-100 [Suspect]
     Indication: PRODUCT USED FOR UNKNOWN INDICATION
     Route: 062
     Dates: start: 20100701
  8. FENTANYL-100 [Concomitant]
     Indication: PAIN
     Dosage: DOSING INFORMATION UNKNOWN
  9. SUBOXONE [Suspect]
     Indication: DRUG DEPENDENCE
     Dosage: 8-16MG DAILY
     Route: 060
     Dates: start: 20100422
  10. FENTANYL-100 [Suspect]
     Route: 062
     Dates: start: 20100801

REACTIONS (2)
  - COMPLETED SUICIDE [None]
  - INTENTIONAL OVERDOSE [None]
